FAERS Safety Report 24074581 (Version 1)
Quarter: 2024Q3

REPORT INFORMATION
  Report Type: Spontaneous
  Country: US (occurrence: US)
  Receive Date: 20240710
  Receipt Date: 20240710
  Transmission Date: 20241016
  Serious: No
  Sender: PIERRE FABRE MEDICAMENT
  Company Number: US-PFM-2024-00324

PATIENT
  Age: 0 Year
  Sex: Female
  Weight: 9.07 kg

DRUGS (1)
  1. HEMANGEOL [Suspect]
     Active Substance: PROPRANOLOL HYDROCHLORIDE
     Indication: Haemangioma
     Dosage: 3.6 ML, BID (2/DAY)
     Route: 048
     Dates: start: 20231207

REACTIONS (4)
  - Sleep disorder [Recovered/Resolved]
  - Intentional product use issue [Unknown]
  - Product administered to patient of inappropriate age [Unknown]
  - Off label use [Unknown]

NARRATIVE: CASE EVENT DATE: 20231207
